FAERS Safety Report 13333763 (Version 1)
Quarter: 2017Q1

REPORT INFORMATION
  Report Type: Spontaneous
  Country: ES (occurrence: ES)
  Receive Date: 20170314
  Receipt Date: 20170314
  Transmission Date: 20170428
  Serious: Yes (Hospitalization)
  Sender: FDA-Public Use
  Company Number: ES-ASTRAZENECA-2017SE26862

PATIENT
  Age: 67 Year
  Sex: Female

DRUGS (6)
  1. SERTRALINE [Suspect]
     Active Substance: SERTRALINE HYDROCHLORIDE
  2. DIAZEPAM. [Suspect]
     Active Substance: DIAZEPAM
  3. OMEPRAZOLE MAGNESIUM. [Suspect]
     Active Substance: OMEPRAZOLE MAGNESIUM
     Route: 048
  4. BIPERIDEN [Suspect]
     Active Substance: BIPERIDEN
  5. CLOZAPINE. [Interacting]
     Active Substance: CLOZAPINE
     Indication: SCHIZOPHRENIA
  6. PALIPERIDONE. [Concomitant]
     Active Substance: PALIPERIDONE

REACTIONS (2)
  - Drug interaction [Unknown]
  - Colitis ischaemic [Recovered/Resolved]
